FAERS Safety Report 4749130-5 (Version None)
Quarter: 2005Q3

REPORT INFORMATION
  Report Type: 
  Country: None (occurrence: None)
  Receive Date: 20050817
  Receipt Date: 20050728
  Transmission Date: 20060218
  Serious: Yes (Hospitalization)
  Sender: FDA-Public Use
  Company Number: SUS1-2005-00600

PATIENT
  Age: 57 Year
  Sex: Female

DRUGS (3)
  1. PENTASA [Suspect]
     Indication: COLITIS ULCERATIVE
     Dosage: 500 MG, 3X/DAY: TID, ORAL
     Route: 048
     Dates: start: 20050603, end: 20050609
  2. FAMOTIDINE [Concomitant]
  3. CHONDROITIN SULFATE [Concomitant]

REACTIONS (1)
  - RASH [None]
